FAERS Safety Report 21505601 (Version 1)
Quarter: 2022Q4

REPORT INFORMATION
  Report Type: Spontaneous
  Country: US (occurrence: US)
  Receive Date: 20221026
  Receipt Date: 20221026
  Transmission Date: 20230112
  Serious: Yes (Hospitalization, Other)
  Sender: FDA-Public Use
  Company Number: US-SA-2022SA132956

PATIENT
  Age: 65 Year
  Sex: Female

DRUGS (2)
  1. SEVELAMER [Suspect]
     Active Substance: SEVELAMER
     Indication: End stage renal disease
     Dosage: UNK
  2. SEVELAMER [Suspect]
     Active Substance: SEVELAMER
     Indication: Congenital cystic kidney disease

REACTIONS (10)
  - Crystal deposit intestine [Unknown]
  - Large intestinal obstruction [Unknown]
  - Gastrointestinal mucosal disorder [Unknown]
  - Diverticulitis [Unknown]
  - Colitis erosive [Unknown]
  - Abdominal pain lower [Unknown]
  - Vomiting [Unknown]
  - Nausea [Unknown]
  - Colonic abscess [Unknown]
  - Haematochezia [Unknown]
